FAERS Safety Report 6094199-1 (Version None)
Quarter: 2009Q1

REPORT INFORMATION
  Report Type: 
  Country: None (occurrence: None)
  Receive Date: 20090223
  Receipt Date: 20090206
  Transmission Date: 20090719
  Serious: Yes (Hospitalization, Disabling, Other)
  Sender: FDA-Public Use
  Company Number: A-CH2008-23047

PATIENT
  Age: 57 Year
  Sex: Female
  Weight: 71 kg

DRUGS (8)
  1. TRACLEER [Suspect]
     Indication: SKIN ULCER
     Dosage: 125 MG, BID, ORAL; 62.5 MG, BID, ORAL
     Route: 048
     Dates: start: 20080321, end: 20080421
  2. TRACLEER [Suspect]
     Indication: SKIN ULCER
     Dosage: 125 MG, BID, ORAL; 62.5 MG, BID, ORAL
     Route: 048
     Dates: start: 20080422, end: 20081103
  3. PROSTACYCLIN (EPOPROSTENOL) [Concomitant]
  4. CORTICOSTEROIDS [Concomitant]
  5. COLCHICINE (COLCHICINE) [Concomitant]
  6. IMUREL (AZATHIOPRINE) [Concomitant]
  7. DILTIAZEM HYDROCHLORIDE [Concomitant]
  8. RAMIPRIL [Concomitant]

REACTIONS (5)
  - DRUG INEFFECTIVE [None]
  - OEDEMA PERIPHERAL [None]
  - PAIN [None]
  - PERIPHERAL MOTOR NEUROPATHY [None]
  - SKIN ULCER [None]
